FAERS Safety Report 7876542-3 (Version None)
Quarter: 2011Q4

REPORT INFORMATION
  Report Type: 
  Country: None (occurrence: None)
  Receive Date: 20111031
  Receipt Date: 20111021
  Transmission Date: 20120403
  Serious: Yes (Hospitalization, Other)
  Sender: FDA-Public Use
  Company Number: US-ELI_LILLY_AND_COMPANY-US201109005631

PATIENT
  Age: 42 Year
  Sex: Female

DRUGS (5)
  1. PRANDIN [Concomitant]
     Dosage: UNK
  2. CRESTOR [Concomitant]
     Dosage: UNK
  3. BYETTA [Suspect]
     Dosage: 10 UG, BID
     Dates: start: 20110401
  4. GLUMETZA [Concomitant]
     Dosage: UNK
  5. BYETTA [Suspect]
     Dosage: 5 UG, BID
     Route: 058
     Dates: start: 20110301, end: 20110401

REACTIONS (4)
  - PROCEDURAL VOMITING [None]
  - THYROID CANCER [None]
  - NAUSEA [None]
  - TUMOUR INVASION [None]
